FAERS Safety Report 9768942 (Version 1)
Quarter: 2013Q4

REPORT INFORMATION
  Report Type: Spontaneous
  Country: JP (occurrence: None)
  Receive Date: 20131216
  Receipt Date: 20131216
  Transmission Date: 20140711
  Serious: Yes (Hospitalization)
  Sender: FDA-Public Use
  Company Number: 152268

PATIENT
  Age: 68 Year
  Sex: Female

DRUGS (1)
  1. CISPLATIN [Suspect]
     Indication: CHEMOTHERAPY

REACTIONS (6)
  - Deep vein thrombosis [None]
  - Cardio-respiratory arrest [None]
  - Loss of consciousness [None]
  - Pulmonary artery thrombosis [None]
  - Vena cava thrombosis [None]
  - Catheter site haemorrhage [None]
